FAERS Safety Report 10897633 (Version 2)
Quarter: 2015Q3

REPORT INFORMATION
  Report Type: Spontaneous
  Country: US (occurrence: US)
  Receive Date: 20150309
  Receipt Date: 20150821
  Transmission Date: 20151125
  Serious: Yes (Other)
  Sender: FDA-Public Use
  Company Number: US-ASTRAZENECA-2015SE20221

PATIENT
  Age: 697 Month
  Sex: Male
  Weight: 134.3 kg

DRUGS (25)
  1. NAPROXEN. [Concomitant]
     Active Substance: NAPROXEN
     Dates: start: 20100513
  2. LISINOPRIL. [Concomitant]
     Active Substance: LISINOPRIL
     Dates: start: 20101120
  3. OXYCODONE HCL [Concomitant]
     Active Substance: OXYCODONE HYDROCHLORIDE
     Dates: start: 20130613
  4. DOXYCYCLINE HYCLATE. [Concomitant]
     Active Substance: DOXYCYCLINE HYCLATE
     Dates: start: 20130620
  5. BYETTA [Suspect]
     Active Substance: EXENATIDE
     Route: 065
     Dates: start: 20100219
  6. BYETTA [Suspect]
     Active Substance: EXENATIDE
     Route: 065
     Dates: start: 20110221
  7. IBUPROFEN. [Concomitant]
     Active Substance: IBUPROFEN
     Dates: start: 20070202
  8. RYTHMOL [Concomitant]
     Active Substance: PROPAFENONE HYDROCHLORIDE
     Dates: start: 20090914
  9. ONDANSETRON [Concomitant]
     Active Substance: ONDANSETRON
     Dates: start: 20130425
  10. BYETTA [Suspect]
     Active Substance: EXENATIDE
     Route: 065
     Dates: start: 20130110
  11. PRAVASTATIN SODIUM. [Concomitant]
     Active Substance: PRAVASTATIN SODIUM
     Dates: start: 20131127
  12. NEXIUM [Concomitant]
     Active Substance: ESOMEPRAZOLE MAGNESIUM
     Dates: start: 20100513
  13. CLONIDINE HCL [Concomitant]
     Active Substance: CLONIDINE HYDROCHLORIDE
     Dates: start: 20110901
  14. HYDROCODON-ACETAMINOPHENE [Concomitant]
     Dosage: 5-500
     Dates: start: 20090715
  15. METFORMIN HCL [Concomitant]
     Active Substance: METFORMIN HYDROCHLORIDE
     Dates: start: 20070202
  16. LEVAQUIN [Concomitant]
     Active Substance: LEVOFLOXACIN
     Dates: start: 20091104
  17. TRAMADOL HCL [Concomitant]
     Active Substance: TRAMADOL HYDROCHLORIDE
     Dates: start: 20130409
  18. CEPHALEXIN. [Concomitant]
     Active Substance: CEPHALEXIN
     Dates: start: 20090715
  19. CARTIA XT [Concomitant]
     Active Substance: DILTIAZEM HYDROCHLORIDE
     Dates: start: 20070423
  20. BYETTA [Suspect]
     Active Substance: EXENATIDE
     Route: 065
     Dates: start: 20091201, end: 20130208
  21. BYETTA [Suspect]
     Active Substance: EXENATIDE
     Route: 065
     Dates: start: 20120128
  22. DIPHENHYDRAMINE. [Concomitant]
     Active Substance: DIPHENHYDRAMINE
     Dates: start: 20070418
  23. HYDROCHLOROTHIAZIDE. [Concomitant]
     Active Substance: HYDROCHLOROTHIAZIDE
     Dates: start: 20100513
  24. FERROUS SULFATE [Concomitant]
     Active Substance: FERROUS SULFATE\FERROUS SULFATE, DRIED
     Dates: start: 20130723
  25. GABAPENTIN. [Concomitant]
     Active Substance: GABAPENTIN
     Dates: start: 20131018

REACTIONS (2)
  - Pancreatic carcinoma [Unknown]
  - Pancreatitis [Unknown]

NARRATIVE: CASE EVENT DATE: 201302
